FAERS Safety Report 9139152 (Version 1)
Quarter: 2013Q1

REPORT INFORMATION
  Report Type: Spontaneous
  Country: CH (occurrence: CH)
  Receive Date: 20130305
  Receipt Date: 20130305
  Transmission Date: 20140127
  Serious: Yes (Hospitalization)
  Sender: FDA-Public Use
  Company Number: CH-JNJFOC-20130216600

PATIENT
  Sex: Female

DRUGS (4)
  1. ZALDIAR [Suspect]
     Indication: PRODUCT USED FOR UNKNOWN INDICATION
     Route: 048
  2. LYRICA [Concomitant]
     Indication: TOOTHACHE
     Route: 065
  3. STILNOX [Concomitant]
     Indication: PRODUCT USED FOR UNKNOWN INDICATION
  4. NITRAZEPAM [Concomitant]
     Indication: PRODUCT USED FOR UNKNOWN INDICATION
     Route: 065

REACTIONS (5)
  - Creatinine renal clearance decreased [Unknown]
  - Circulatory collapse [Unknown]
  - Muscular weakness [Unknown]
  - Confusional state [Unknown]
  - Loss of consciousness [Unknown]
